FAERS Safety Report 5186395-2 (Version None)
Quarter: 2006Q4

REPORT INFORMATION
  Report Type: 
  Country: None (occurrence: None)
  Receive Date: 20061220
  Receipt Date: 20061013
  Transmission Date: 20070319
  Serious: Yes (Hospitalization, Other)
  Sender: FDA-Public Use
  Company Number: BR-SHR-BR-2006-031260

PATIENT
  Age: 31 Year
  Sex: Female

DRUGS (3)
  1. BETASERON [Suspect]
     Indication: RELAPSING-REMITTING MULTIPLE SCLEROSIS
     Dosage: 8 MIU, UNK
     Route: 058
     Dates: start: 20060116
  2. OMEPRAZOLE [Concomitant]
     Dosage: UNK, UNK
     Route: 065
  3. TRYPTANOL                               /BRA/ [Concomitant]
     Indication: SLEEP DISORDER

REACTIONS (11)
  - BLINDNESS UNILATERAL [None]
  - EMOTIONAL DISTRESS [None]
  - GASTRITIS [None]
  - HEADACHE [None]
  - HEMIPLEGIA [None]
  - HYPERAEMIA [None]
  - INJECTION SITE BRUISING [None]
  - MENTAL DISORDER [None]
  - MULTIPLE SCLEROSIS RELAPSE [None]
  - RASH ERYTHEMATOUS [None]
  - SINUSITIS [None]
